FAERS Safety Report 5940919-3 (Version None)
Quarter: 2008Q4

REPORT INFORMATION
  Report Type: 
  Country: None (occurrence: None)
  Receive Date: 20081031
  Receipt Date: 20081022
  Transmission Date: 20090506
  Serious: Yes (Hospitalization)
  Sender: FDA-Public Use
  Company Number: 2008SP020030

PATIENT
  Age: 63 Year
  Sex: Female

DRUGS (4)
  1. INTRON A [Suspect]
  2. REBETOL [Suspect]
  3. PEGASYS [Suspect]
     Indication: HEPATITIS C
     Dosage: ; SC
     Route: 058
     Dates: start: 20070501, end: 20080301
  4. COPEGUS [Suspect]
     Indication: HEPATITIS C
     Dosage: ; PO
     Route: 048
     Dates: start: 20070501, end: 20080301

REACTIONS (4)
  - DYSPHAGIA [None]
  - MUSCULAR WEAKNESS [None]
  - MYALGIA [None]
  - POLYMYOSITIS [None]
